FAERS Safety Report 5706141-0 (Version None)
Quarter: 2008Q2

REPORT INFORMATION
  Report Type: 
  Country: None (occurrence: None)
  Receive Date: 20080415
  Receipt Date: 20080407
  Transmission Date: 20081010
  Serious: Yes (Other)
  Sender: FDA-Public Use
  Company Number: GB-TEVA-169770ISR

PATIENT
  Age: 44 Year
  Sex: Female

DRUGS (2)
  1. MIRTAZAPINE [Suspect]
     Indication: DRUG USE FOR UNKNOWN INDICATION
  2. RISPERIDONE [Suspect]
     Indication: DRUG USE FOR UNKNOWN INDICATION

REACTIONS (11)
  - BLOOD PRESSURE FLUCTUATION [None]
  - CONFUSIONAL STATE [None]
  - HYPERHIDROSIS [None]
  - HYPERTHERMIA [None]
  - HYPERTONIA [None]
  - LOSS OF CONSCIOUSNESS [None]
  - MUSCLE RIGIDITY [None]
  - NEUROLEPTIC MALIGNANT SYNDROME [None]
  - NUCHAL RIGIDITY [None]
  - PSYCHOMOTOR RETARDATION [None]
  - SEROTONIN SYNDROME [None]
